FAERS Safety Report 14704311 (Version 2)
Quarter: 2019Q3

REPORT INFORMATION
  Report Type: Other
  Country: DE (occurrence: DE)
  Receive Date: 20180402
  Receipt Date: 20190906
  Transmission Date: 20191004
  Serious: Yes (Hospitalization, Other)
  Sender: FDA-Public Use
  Company Number: DE-MACLEODS PHARMACEUTICALS US LTD-MAC2018011956

PATIENT

DRUGS (6)
  1. MIDOSTAURIN [Suspect]
     Active Substance: MIDOSTAURIN
     Indication: ACUTE MYELOID LEUKAEMIA
     Dosage: 100 MG CAPSULE, UNK
     Route: 048
     Dates: start: 20180110, end: 20180111
  2. TAZOBACTAM [Suspect]
     Active Substance: TAZOBACTAM
     Dosage: UNK
     Route: 065
     Dates: start: 20180211, end: 20180211
  3. PANTOPRAZOLE [Suspect]
     Active Substance: PANTOPRAZOLE
     Indication: GASTRITIS
     Dosage: 80 MILLIGRAM, BID
     Route: 048
     Dates: start: 20180208, end: 20180212
  4. MIDOSTAURIN [Suspect]
     Active Substance: MIDOSTAURIN
     Dosage: UNK, CAPSULE
     Route: 048
     Dates: start: 20180308
  5. TAZOBACTAM [Suspect]
     Active Substance: TAZOBACTAM
     Indication: UROSEPSIS
     Dosage: 4.5 MILLIGRAM, TID
     Route: 065
     Dates: start: 20180206, end: 20180211
  6. PANTOPRAZOLE [Suspect]
     Active Substance: PANTOPRAZOLE
     Dosage: UNK
     Route: 048
     Dates: start: 20180212

REACTIONS (2)
  - Transaminases increased [Not Recovered/Not Resolved]
  - Urosepsis [Recovered/Resolved]

NARRATIVE: CASE EVENT DATE: 20180206
